FAERS Safety Report 16899810 (Version 1)
Quarter: 2019Q4

REPORT INFORMATION
  Report Type: Spontaneous
  Country: US (occurrence: US)
  Receive Date: 20191008
  Receipt Date: 20191008
  Transmission Date: 20200122
  Serious: No
  Sender: FDA-Public Use
  Company Number: None

PATIENT
  Age: 32 Year
  Sex: Female
  Weight: 81 kg

DRUGS (10)
  1. LEVOFLOXACIN. [Suspect]
     Active Substance: LEVOFLOXACIN
     Indication: SINUSITIS
     Dosage: ?          QUANTITY:7 TABLET(S);?
     Route: 048
     Dates: start: 20191001, end: 20191007
  2. ATIVAN [Concomitant]
     Active Substance: LORAZEPAM
  3. SINGULAIR [Concomitant]
     Active Substance: MONTELUKAST SODIUM
  4. EFFEXOR XR [Concomitant]
     Active Substance: VENLAFAXINE HYDROCHLORIDE
  5. BABY ASPIRIN [Concomitant]
     Active Substance: ASPIRIN
  6. LEVOCETIRIZINE [Concomitant]
     Active Substance: LEVOCETIRIZINE
  7. PROPRANOLOL [Concomitant]
     Active Substance: PROPRANOLOL HYDROCHLORIDE
  8. PROGRAF [Concomitant]
     Active Substance: TACROLIMUS
  9. DOXYCYCLINE. [Concomitant]
     Active Substance: DOXYCYCLINE
  10. MULTIVITAMIN [Concomitant]
     Active Substance: VITAMINS

REACTIONS (2)
  - Muscular weakness [None]
  - Myalgia [None]

NARRATIVE: CASE EVENT DATE: 20191006
